FAERS Safety Report 24689973 (Version 1)
Quarter: 2024Q4

REPORT INFORMATION
  Report Type: Spontaneous
  Country: US (occurrence: US)
  Receive Date: 20241203
  Receipt Date: 20241203
  Transmission Date: 20250114
  Serious: Yes (Life-Threatening, Hospitalization, Other)
  Sender: HIKMA
  Company Number: US-MLMSERVICE-20241115-PI258359-00202-1

PATIENT
  Age: 93 Year
  Sex: Female

DRUGS (1)
  1. LINEZOLID [Suspect]
     Active Substance: LINEZOLID
     Indication: Enterococcal infection
     Dosage: UNKNOWN
     Route: 065

REACTIONS (5)
  - Lactic acidosis [Unknown]
  - Haemodynamic instability [Unknown]
  - Hypotension [Unknown]
  - Pneumonia [Unknown]
  - Acute kidney injury [Unknown]
